FAERS Safety Report 18959993 (Version 1)
Quarter: 2021Q1

REPORT INFORMATION
  Report Type: Spontaneous
  Country: US (occurrence: US)
  Receive Date: 20210302
  Receipt Date: 20210302
  Transmission Date: 20210420
  Serious: No
  Sender: FDA-Public Use
  Company Number: US-ELI_LILLY_AND_COMPANY-US202102011841

PATIENT
  Age: 62 Year
  Sex: Female

DRUGS (2)
  1. CLARITIN [Concomitant]
     Active Substance: LORATADINE
     Indication: NASAL CONGESTION
  2. BAMLANIVIMAB 700MG [Suspect]
     Active Substance: BAMLANIVIMAB
     Indication: COVID-19
     Dosage: UNK, SINGLE
     Route: 065

REACTIONS (1)
  - Fatigue [Unknown]
